FAERS Safety Report 7860877-4 (Version None)
Quarter: 2011Q4

REPORT INFORMATION
  Report Type: 
  Country: None (occurrence: None)
  Receive Date: 20111027
  Receipt Date: 20111024
  Transmission Date: 20120403
  Serious: Yes (Other)
  Sender: FDA-Public Use
  Company Number: US-BAYER-2011-103941

PATIENT
  Sex: Male

DRUGS (1)
  1. ASPIRIN [Suspect]
     Dosage: BOTTLE COUNT WAS NOT REPORTED.
     Route: 048

REACTIONS (1)
  - GASTRIC HAEMORRHAGE [None]
